FAERS Safety Report 8028963-6 (Version None)
Quarter: 2012Q1

REPORT INFORMATION
  Report Type: 
  Country: None (occurrence: None)
  Receive Date: 20120106
  Receipt Date: 20120104
  Transmission Date: 20120608
  Serious: Yes (Other)
  Sender: FDA-Public Use
  Company Number: US-JNJFOC-20111211679

PATIENT
  Age: 77 Year
  Sex: Female
  Weight: 63.5 kg

DRUGS (3)
  1. SODIUM FLUORIDE F 18 [Suspect]
     Indication: DENTAL DISORDER PROPHYLAXIS
     Dosage: AS DIRECTED
     Route: 048
  2. PREDNISONE TAB [Concomitant]
     Indication: ARTHRITIS
     Dosage: ONE YEAR AGO
     Route: 065
  3. DIOVAN HCT [Concomitant]
     Indication: BLOOD PRESSURE
     Dosage: TWO YEARS AGO
     Route: 065

REACTIONS (2)
  - AGEUSIA [None]
  - GLOSSODYNIA [None]
